FAERS Safety Report 5463974-6 (Version None)
Quarter: 2007Q3

REPORT INFORMATION
  Report Type: 
  Country: None (occurrence: None)
  Receive Date: 20070921
  Receipt Date: 20070913
  Transmission Date: 20080115
  Serious: Yes (Hospitalization)
  Sender: FDA-Public Use
  Company Number: PHHO2007US13112

PATIENT
  Age: 64 Year
  Sex: Male
  Weight: 95 kg

DRUGS (4)
  1. LOTREL [Suspect]
     Indication: HYPERTENSION
     Dosage: LEVEL 1
     Route: 048
     Dates: start: 20050201
  2. LOTREL [Suspect]
     Dosage: LEVEL 3
     Route: 048
     Dates: end: 20060501
  3. LOTREL [Suspect]
     Dosage: NO TREATMENT
  4. HYDROCHLOROTHIAZIDE [Suspect]

REACTIONS (3)
  - HYPOKALAEMIA [None]
  - PALPITATIONS [None]
  - VOMITING [None]
